FAERS Safety Report 8292324 (Version 4)
Quarter: 2013Q2

REPORT INFORMATION
  Report Type: Report from Study
  Country: JP (occurrence: JP)
  Receive Date: 20111215
  Receipt Date: 20130425
  Transmission Date: 20140414
  Serious: Yes (Hospitalization)
  Sender: FDA-Public Use
  Company Number: JP-JNJFOC-20111203782

PATIENT
  Age: 59 Year
  Sex: Male

DRUGS (5)
  1. USTEKINUMAB [Suspect]
     Indication: PSORIASIS
     Route: 058
     Dates: start: 20120110
  2. USTEKINUMAB [Suspect]
     Indication: PSORIASIS
     Route: 058
     Dates: start: 20110627, end: 20111017
  3. MYSER [Concomitant]
     Route: 061
  4. OXAROL [Concomitant]
     Route: 061
  5. RINDERON [Concomitant]
     Route: 061

REACTIONS (1)
  - Enteritis infectious [Recovered/Resolved]
